FAERS Safety Report 5620444-X (Version None)
Quarter: 2008Q1

REPORT INFORMATION
  Report Type: 
  Country: None (occurrence: None)
  Receive Date: 20080208
  Receipt Date: 20080204
  Transmission Date: 20080703
  Serious: Yes (Death)
  Sender: FDA-Public Use
  Company Number: US-ABBOTT-08P-163-0436379-00

PATIENT
  Sex: Female
  Weight: 77.18 kg

DRUGS (1)
  1. GENGRAF [Suspect]
     Indication: RENAL TRANSPLANT
     Dates: start: 19930101

REACTIONS (2)
  - CARDIAC FAILURE [None]
  - DEATH [None]
